FAERS Safety Report 9971657 (Version 1)
Quarter: 2014Q1

REPORT INFORMATION
  Report Type: Spontaneous
  Country: DE (occurrence: None)
  Receive Date: 20140304
  Receipt Date: 20140304
  Transmission Date: 20141002
  Serious: Yes (Other)
  Sender: FDA-Public Use
  Company Number: AUR-APL-2014-02109

PATIENT
  Age: 58 Year
  Sex: Male

DRUGS (3)
  1. RIBAVIRIN [Suspect]
     Indication: HEPATITIS C
  2. PEGINTERFERON (PEGINTERFERON) [Suspect]
     Indication: HEPATITIS C
  3. TELAPREVIR (TELAPREVIR) [Suspect]
     Indication: HEPATITIS C

REACTIONS (6)
  - Yersinia infection [None]
  - Gastroenteritis norovirus [None]
  - Gastroenteritis clostridial [None]
  - Gastroenteritis bacterial [None]
  - Proteus infection [None]
  - Urinary tract infection bacterial [None]
